FAERS Safety Report 13559483 (Version 3)
Quarter: 2017Q4

REPORT INFORMATION
  Report Type: Report from Study
  Country: AU (occurrence: AU)
  Receive Date: 20170518
  Receipt Date: 20171117
  Transmission Date: 20180320
  Serious: Yes (Hospitalization)
  Sender: FDA-Public Use
  Company Number: AU-TOLMAR, INC.-2017AU006152

PATIENT
  Sex: Male

DRUGS (1)
  1. ELIGARD [Suspect]
     Active Substance: LEUPROLIDE ACETATE
     Indication: PROSTATE CANCER
     Dosage: 22.5 MG, Q3MONTHS
     Route: 065
     Dates: start: 20170210

REACTIONS (11)
  - Pelvic neoplasm [Recovering/Resolving]
  - Deep vein thrombosis [Recovering/Resolving]
  - Bowel movement irregularity [Unknown]
  - Weight increased [Unknown]
  - Sleep disorder [Unknown]
  - Urinary tract infection [Unknown]
  - Urinary retention [Recovering/Resolving]
  - Anal incontinence [Recovering/Resolving]
  - Neoplasm [Recovering/Resolving]
  - Constipation [Recovering/Resolving]
  - Fall [Unknown]

NARRATIVE: CASE EVENT DATE: 2017
